FAERS Safety Report 22379253 (Version 2)
Quarter: 2023Q2

REPORT INFORMATION
  Report Type: Spontaneous
  Country: US (occurrence: US)
  Receive Date: 20230529
  Receipt Date: 20230601
  Transmission Date: 20230722
  Serious: Yes (Life-Threatening, Other)
  Sender: FDA-Public Use
  Company Number: US-PFIZER INC-202300202708

PATIENT
  Age: 44 Year
  Sex: Male
  Weight: 71.4 kg

DRUGS (12)
  1. CEFTAZIDIME [Suspect]
     Active Substance: CEFTAZIDIME
     Indication: Pseudomonas infection
     Dosage: 9 G, DAILY (HIGH DOSE OR EXTENDED INFUSION)
  2. CEFTAZIDIME [Suspect]
     Active Substance: CEFTAZIDIME
     Indication: Pyrexia
     Dosage: 19.2 G, DAILY (HIGH DOSE OR EXTENDED INFUSION)
  3. CEFTAZIDIME [Suspect]
     Active Substance: CEFTAZIDIME
     Indication: Sinusitis
     Dosage: 16.8 G, DAILY
     Route: 042
  4. CEFTAZIDIME [Suspect]
     Active Substance: CEFTAZIDIME
     Indication: Pneumonia
     Dosage: 2 G, 3X/DAY
     Route: 042
  5. CEFTAZIDIME [Suspect]
     Active Substance: CEFTAZIDIME
     Indication: Bacteraemia
     Dosage: 16.8 G, DAILY
  6. CEFTAZIDIME [Suspect]
     Active Substance: CEFTAZIDIME
     Dosage: 2 G, 3X/DAY
     Route: 042
  7. CEFTAZIDIME [Suspect]
     Active Substance: CEFTAZIDIME
     Dosage: 10 G, DAILY
     Route: 042
  8. CEFTAZIDIME [Suspect]
     Active Substance: CEFTAZIDIME
     Dosage: 9 G, DAILY
     Route: 042
  9. CEFTAZIDIME [Suspect]
     Active Substance: CEFTAZIDIME
     Dosage: 7 G, DAILY
     Route: 042
  10. MEROPENEM [Suspect]
     Active Substance: MEROPENEM
     Dosage: UNK
  11. CIPROFLOXACIN [Concomitant]
     Active Substance: CIPROFLOXACIN
     Dosage: 400 MG, 2X/DAY
     Route: 042
  12. CIPROFLOXACIN [Concomitant]
     Active Substance: CIPROFLOXACIN
     Dosage: 2 G, EVERY 8 HOURS ON 2/25
     Route: 042

REACTIONS (2)
  - Neurotoxicity [Recovered/Resolved]
  - Intentional product use issue [Unknown]
